FAERS Safety Report 13972858 (Version 2)
Quarter: 2017Q4

REPORT INFORMATION
  Report Type: Spontaneous
  Country: JP (occurrence: JP)
  Receive Date: 20170915
  Receipt Date: 20171201
  Transmission Date: 20180321
  Serious: Yes (Death, Other)
  Sender: FDA-Public Use
  Company Number: JP-BAYER-2017-172500

PATIENT
  Age: 72 Year
  Sex: Male
  Weight: 55 kg

DRUGS (7)
  1. PLETAAL [Concomitant]
     Active Substance: CILOSTAZOL
     Dosage: 2DF/DAY
     Route: 048
     Dates: start: 201102
  2. BASEN [Concomitant]
     Active Substance: VOGLIBOSE
     Dosage: 2DF/DAY
     Route: 048
  3. BAYASPIRIN 100 MG [Suspect]
     Active Substance: ASPIRIN
     Indication: MYOCARDIAL INFARCTION
     Dosage: 1DF/DAY
     Route: 048
     Dates: start: 201007
  4. AMARYL [Concomitant]
     Active Substance: GLIMEPIRIDE
     Dosage: 0.5DF/DAY
     Route: 048
  5. AMLODIN [Concomitant]
     Active Substance: AMLODIPINE BESYLATE
     Dosage: 1DF/DAY
     Route: 048
  6. LIPITOR [Concomitant]
     Active Substance: ATORVASTATIN CALCIUM
     Dosage: 1DF/DAY
     Route: 048
  7. MICARDIS [Concomitant]
     Active Substance: TELMISARTAN
     Dosage: 0.5DF/DAY
     Route: 048

REACTIONS (7)
  - Depressed level of consciousness [None]
  - Pneumonia [Fatal]
  - Somnolence [None]
  - Respiratory disorder [Fatal]
  - Intraventricular haemorrhage [Fatal]
  - Hemiplegia [Fatal]
  - Neck pain [Fatal]

NARRATIVE: CASE EVENT DATE: 20110610
